FAERS Safety Report 6305430-9 (Version None)
Quarter: 2009Q3

REPORT INFORMATION
  Report Type: 
  Country: None (occurrence: None)
  Receive Date: 20090811
  Receipt Date: 20090728
  Transmission Date: 20100115
  Serious: Yes (Hospitalization)
  Sender: FDA-Public Use
  Company Number: NL-MYLANLABS-2009S1013496

PATIENT
  Age: 29 Year
  Sex: Male

DRUGS (2)
  1. VENLAFAXINE HYDROCHLORIDE [Suspect]
  2. OXAZEPAM [Suspect]

REACTIONS (3)
  - DRUG TOXICITY [None]
  - HYPOGLYCAEMIA [None]
  - SEROTONIN SYNDROME [None]
